FAERS Safety Report 19733701 (Version 1)
Quarter: 2021Q3

REPORT INFORMATION
  Report Type: Spontaneous
  Country: NL (occurrence: NL)
  Receive Date: 20210823
  Receipt Date: 20210823
  Transmission Date: 20211014
  Serious: Yes (Hospitalization, Other)
  Sender: FDA-Public Use
  Company Number: NL-NOVOPROD-837239

PATIENT
  Age: 64 Year
  Sex: Male
  Weight: 123 kg

DRUGS (1)
  1. OZEMPIC [Suspect]
     Active Substance: SEMAGLUTIDE
     Indication: DIABETES MELLITUS
     Dosage: 1 DF, QW
     Route: 065
     Dates: start: 2021, end: 20210413

REACTIONS (5)
  - Pruritus [Unknown]
  - Scrotal oedema [Unknown]
  - Abdominal pain [Unknown]
  - Haematoma [Unknown]
  - Lymphoma [Unknown]

NARRATIVE: CASE EVENT DATE: 20210525
